FAERS Safety Report 18096248 (Version 3)
Quarter: 2021Q2

REPORT INFORMATION
  Report Type: Spontaneous
  Country: US (occurrence: US)
  Receive Date: 20200730
  Receipt Date: 20210618
  Transmission Date: 20210717
  Serious: Yes (Hospitalization, Other)
  Sender: FDA-Public Use
  Company Number: US-GILEAD-2020-0487166

PATIENT
  Age: 56 Year
  Sex: Male

DRUGS (11)
  1. BACTRIM [Concomitant]
     Active Substance: SULFAMETHOXAZOLE\TRIMETHOPRIM
  2. LASIX [Concomitant]
     Active Substance: FUROSEMIDE
  3. OMEPRAZOLE. [Concomitant]
     Active Substance: OMEPRAZOLE
  4. RANITIDINE. [Concomitant]
     Active Substance: RANITIDINE
  5. COMPLERA [Suspect]
     Active Substance: EMTRICITABINE\RILPIVIRINE HYDROCHLORIDE\TENOFOVIR DISOPROXIL FUMARATE
     Indication: HIV INFECTION
     Dosage: UNK
     Route: 048
     Dates: start: 20171109, end: 20181108
  6. ASPIRINE [Concomitant]
     Active Substance: ASPIRIN
  7. ATRIPLA [Suspect]
     Active Substance: EFAVIRENZ\EMTRICITABINE\TENOFOVIR DISOPROXIL FUMARATE
     Indication: HIV INFECTION
     Dosage: UNK
     Route: 048
     Dates: start: 20070227, end: 20170919
  8. AMOXICILLIN. [Concomitant]
     Active Substance: AMOXICILLIN
  9. ATORVASTATIN [Concomitant]
     Active Substance: ATORVASTATIN
  10. EPIVIR [Concomitant]
     Active Substance: LAMIVUDINE
  11. SUSTIVA [Concomitant]
     Active Substance: EFAVIRENZ

REACTIONS (4)
  - Fanconi syndrome acquired [Not Recovered/Not Resolved]
  - Acute kidney injury [Not Recovered/Not Resolved]
  - Renal impairment [Not Recovered/Not Resolved]
  - Proteinuria [Not Recovered/Not Resolved]

NARRATIVE: CASE EVENT DATE: 2015
